FAERS Safety Report 4633055-X (Version None)
Quarter: 2005Q2

REPORT INFORMATION
  Report Type: 
  Country: None (occurrence: None)
  Receive Date: 20050412
  Receipt Date: 20050408
  Transmission Date: 20051028
  Serious: Yes (Life-Threatening, Hospitalization)
  Sender: FDA-Public Use
  Company Number: US-MERCK-0504USA01189

PATIENT
  Age: 70 Year
  Sex: Male

DRUGS (1)
  1. VIOXX [Suspect]
     Route: 048

REACTIONS (2)
  - ASTHENIA [None]
  - RECTAL HAEMORRHAGE [None]
